APPROVED DRUG PRODUCT: DIPYRIDAMOLE
Active Ingredient: DIPYRIDAMOLE
Strength: 25MG
Dosage Form/Route: TABLET;ORAL
Application: A040898 | Product #001
Applicant: CHARTWELL RX SCIENCES LLC
Approved: Apr 23, 2008 | RLD: No | RS: No | Type: DISCN